FAERS Safety Report 8435115-4 (Version None)
Quarter: 2012Q2

REPORT INFORMATION
  Report Type: 
  Country: None (occurrence: None)
  Receive Date: 20120614
  Receipt Date: 20120611
  Transmission Date: 20120825
  Serious: Yes (Death, Other)
  Sender: FDA-Public Use
  Company Number: PHHY2012IN050059

PATIENT
  Age: 27 Year
  Sex: Male
  Weight: 58 kg

DRUGS (4)
  1. PREDNISOLONE [Suspect]
     Indication: RENAL TRANSPLANT
     Dosage: 10 MG/DAY
  2. METHYLPREDNISOLONE [Suspect]
     Indication: TRANSPLANT REJECTION
     Dosage: 1 G DAILY, 3 INTRAVENOUS PULSES
  3. AZATHIOPRINE [Suspect]
     Indication: RENAL TRANSPLANT
     Dosage: 100 MG/DAY
  4. CYCLOSPORINE [Suspect]
     Indication: RENAL TRANSPLANT
     Dosage: 175 MG/DAY

REACTIONS (27)
  - SYSTEMIC INFLAMMATORY RESPONSE SYNDROME [None]
  - TACHYCARDIA [None]
  - PALLOR [None]
  - ABDOMINAL MASS [None]
  - NECROSIS [None]
  - COMPLICATIONS OF TRANSPLANTED KIDNEY [None]
  - IMMUNE RECONSTITUTION SYNDROME [None]
  - PYREXIA [None]
  - ILL-DEFINED DISORDER [None]
  - PLEURAL EFFUSION [None]
  - WEIGHT DECREASED [None]
  - ABDOMINAL PAIN [None]
  - TUBERCULOSIS [None]
  - HAEMATOCHEZIA [None]
  - BLOOD ALBUMIN INCREASED [None]
  - DISSEMINATED INTRAVASCULAR COAGULATION [None]
  - LUNG INFILTRATION [None]
  - LEUKOPENIA [None]
  - HYPOTENSION [None]
  - INTUSSUSCEPTION [None]
  - ANAEMIA [None]
  - OXYGEN CONSUMPTION DECREASED [None]
  - TACHYPNOEA [None]
  - OLIGURIA [None]
  - KIDNEY TRANSPLANT REJECTION [None]
  - MULTI-ORGAN FAILURE [None]
  - DIARRHOEA [None]
